FAERS Safety Report 5484152-0 (Version None)
Quarter: 2007Q4

REPORT INFORMATION
  Report Type: 
  Country: None (occurrence: None)
  Receive Date: 20071012
  Receipt Date: 20070807
  Transmission Date: 20080405
  Serious: No
  Sender: FDA-Public Use
  Company Number: US-ASTRAZENECA-2007UW19045

PATIENT
  Age: 78 Year
  Sex: Female
  Weight: 77.1 kg

DRUGS (21)
  1. SYMBICORT [Suspect]
     Indication: CHRONIC OBSTRUCTIVE PULMONARY DISEASE
     Dosage: 160/4.5 MCG BID
     Route: 055
     Dates: start: 20070801
  2. ASPIRIN [Concomitant]
  3. ATENOLOL [Concomitant]
  4. ATROVENT [Concomitant]
  5. EVISTA [Concomitant]
  6. FLONASE [Concomitant]
  7. ISOSORBIDE DINITRATE [Concomitant]
  8. LEVOXYL [Concomitant]
  9. LUNESTA [Concomitant]
  10. NITROQUICK [Concomitant]
  11. NORVASC [Concomitant]
  12. PREDNISONE [Concomitant]
     Dosage: 10 MG THEN 5 MG
  13. PROTONIX [Concomitant]
  14. SINGULAIR [Concomitant]
  15. SPIRONOLACTONE [Concomitant]
  16. SPIRIVA [Concomitant]
  17. SULFAMETHIZOLE TAB [Concomitant]
  18. TYLENOL (CAPLET) [Concomitant]
  19. VYTORIN [Concomitant]
  20. ZOLOFT [Concomitant]
  21. VITAMINS [Concomitant]

REACTIONS (4)
  - ASTHENIA [None]
  - HEADACHE [None]
  - NAUSEA [None]
  - VISION BLURRED [None]
